FAERS Safety Report 5876833-1 (Version None)
Quarter: 2008Q3

REPORT INFORMATION
  Report Type: 
  Country: None (occurrence: None)
  Receive Date: 20080908
  Receipt Date: 20080827
  Transmission Date: 20090109
  Serious: Yes (Hospitalization)
  Sender: FDA-Public Use
  Company Number: 238182J08USA

PATIENT
  Age: 49 Year
  Sex: Female
  Weight: 68.0396 kg

DRUGS (6)
  1. REBIF [Suspect]
     Indication: MULTIPLE SCLEROSIS
     Dosage: 44 MCG, 3 IN 1 WEEKS, SUBCUTANEOUS
     Route: 058
     Dates: start: 20061103
  2. EFFEXOR [Concomitant]
  3. BACLOFEN [Concomitant]
  4. ALPRAZOLAM [Concomitant]
  5. AMBIEN [Concomitant]
  6. LISINOPRIL [Concomitant]

REACTIONS (9)
  - BACK PAIN [None]
  - COGNITIVE DISORDER [None]
  - CORONARY ARTERY OCCLUSION [None]
  - CRYING [None]
  - INCONTINENCE [None]
  - MEMORY IMPAIRMENT [None]
  - MUSCULAR WEAKNESS [None]
  - MYOCARDIAL INFARCTION [None]
  - PAIN [None]
